FAERS Safety Report 6851612-7 (Version None)
Quarter: 2010Q3

REPORT INFORMATION
  Report Type: 
  Country: None (occurrence: None)
  Receive Date: 20100717
  Receipt Date: 20080125
  Transmission Date: 20110219
  Serious: No
  Sender: FDA-Public Use
  Company Number: US-PFIZER INC-2008007928

PATIENT
  Sex: Female
  Weight: 90.9 kg

DRUGS (8)
  1. CHANTIX [Suspect]
     Indication: SMOKING CESSATION THERAPY
     Dates: start: 20080122
  2. ATENOLOL [Concomitant]
  3. METHOCARBAMOL [Concomitant]
     Indication: RHEUMATOID ARTHRITIS
  4. METHOCARBAMOL [Concomitant]
     Indication: FIBROMYALGIA
  5. LEXAPRO [Concomitant]
     Indication: PAIN
  6. LOVASTATIN [Concomitant]
     Indication: BLOOD CHOLESTEROL INCREASED
  7. NEXIUM [Concomitant]
  8. EVISTA [Concomitant]

REACTIONS (3)
  - ABDOMINAL DISCOMFORT [None]
  - HEADACHE [None]
  - MYALGIA [None]
